FAERS Safety Report 9806090 (Version 1)
Quarter: 2014Q1

REPORT INFORMATION
  Report Type: Spontaneous
  Country: JP (occurrence: JP)
  Receive Date: 20140109
  Receipt Date: 20140109
  Transmission Date: 20141002
  Serious: Yes (Other)
  Sender: FDA-Public Use
  Company Number: PHHY2014JP001068

PATIENT
  Age: 73 Year
  Sex: Male

DRUGS (4)
  1. CARBOPLATIN [Suspect]
     Indication: LUNG CARCINOMA CELL TYPE UNSPECIFIED STAGE III
     Dates: start: 201006
  2. PACLITAXEL [Suspect]
     Indication: LUNG CARCINOMA CELL TYPE UNSPECIFIED STAGE III
     Dosage: 200 MG/M2, ONCE/SINGLE
     Dates: start: 201006
  3. DOCETAXEL [Suspect]
     Dosage: 60 MG/M2, EVERY 3 TO 4 WEEKS
  4. RADIATION THERAPY [Concomitant]

REACTIONS (9)
  - Arthralgia [Unknown]
  - Myalgia [Unknown]
  - Bone marrow failure [Unknown]
  - Anaemia [Unknown]
  - Leukopenia [Recovered/Resolved]
  - Neutropenia [Recovered/Resolved]
  - Platelet count decreased [Unknown]
  - Lung carcinoma cell type unspecified stage III [Unknown]
  - Malignant neoplasm progression [Unknown]
